FAERS Safety Report 4278333-1 (Version None)
Quarter: 2004Q1

REPORT INFORMATION
  Report Type: 
  Country: None (occurrence: None)
  Receive Date: 20040121
  Receipt Date: 20040105
  Transmission Date: 20041129
  Serious: Yes (Hospitalization)
  Sender: FDA-Public Use
  Company Number: 2000535

PATIENT
  Age: 53 Year
  Sex: Female
  Weight: 78.75 kg

DRUGS (15)
  1. KEPPRA [Suspect]
     Indication: CLONIC CONVULSION
     Dosage: 500 MG 2/D PO
     Route: 048
     Dates: start: 20011214, end: 20020612
  2. KEPPRA [Suspect]
     Indication: TEMPORAL LOBE EPILEPSY
     Dosage: 500 MG 2/D PO
     Route: 048
     Dates: start: 20011214, end: 20020612
  3. KEPPRA [Suspect]
     Indication: CLONIC CONVULSION
     Dosage: 500 MG PO
     Route: 048
     Dates: start: 20020613, end: 20020601
  4. KEPPRA [Suspect]
     Indication: TEMPORAL LOBE EPILEPSY
     Dosage: 500 MG PO
     Route: 048
     Dates: start: 20020613, end: 20020601
  5. KEPPRA [Suspect]
     Indication: TEMPORAL LOBE EPILEPSY
     Dosage: 250 MG PO
     Route: 048
     Dates: start: 20020601, end: 20020101
  6. KEPPRA [Suspect]
     Indication: CLONIC CONVULSION
     Dosage: 500 MG 2/D PO
     Route: 048
     Dates: start: 20020601
  7. KEPPRA [Suspect]
     Indication: TEMPORAL LOBE EPILEPSY
     Dosage: 500 MG 2/D PO
     Route: 048
     Dates: start: 20020601
  8. KEPPRA [Suspect]
     Indication: CLONIC CONVULSION
     Dosage: 1250 MG PO
     Route: 048
     Dates: start: 20020101, end: 20020101
  9. KEPPRA [Suspect]
     Indication: TEMPORAL LOBE EPILEPSY
     Dosage: 1250 MG PO
     Route: 048
     Dates: start: 20020101, end: 20020101
  10. KEPPRA [Suspect]
     Indication: CLONIC CONVULSION
     Dosage: 1500 MG PO
     Route: 048
     Dates: start: 20020928, end: 20021011
  11. KEPPRA [Suspect]
     Indication: TEMPORAL LOBE EPILEPSY
     Dosage: 1500 MG PO
     Route: 048
     Dates: start: 20020928, end: 20021011
  12. KEPPRA [Suspect]
     Indication: CLONIC CONVULSION
     Dosage: 1000 MG PO
     Route: 048
     Dates: start: 20021012
  13. KEPPRA [Suspect]
     Indication: TEMPORAL LOBE EPILEPSY
     Dosage: 1000 MG PO
     Route: 048
     Dates: start: 20021012
  14. TEGRETOL [Concomitant]
  15. MULTIVITAMIN [Concomitant]

REACTIONS (9)
  - BRONCHITIS [None]
  - CHEST X-RAY ABNORMAL [None]
  - COMA [None]
  - CONVULSION [None]
  - HERPES ZOSTER [None]
  - MEMORY IMPAIRMENT [None]
  - PERIORBITAL HAEMATOMA [None]
  - PSORIASIS [None]
  - SELF-MEDICATION [None]
